FAERS Safety Report 7817364-9 (Version None)
Quarter: 2011Q4

REPORT INFORMATION
  Report Type: 
  Country: None (occurrence: None)
  Receive Date: 20111017
  Receipt Date: 20111006
  Transmission Date: 20120403
  Serious: Yes (Hospitalization, Other)
  Sender: FDA-Public Use
  Company Number: US-RB-028581-11

PATIENT
  Age: 70 Year
  Sex: Female

DRUGS (1)
  1. MUCINEX DM MAX STRENGTH [Suspect]
     Indication: BRONCHITIS
     Route: 048
     Dates: start: 20110926

REACTIONS (2)
  - HYPOTENSION [None]
  - LOSS OF CONSCIOUSNESS [None]
